FAERS Safety Report 23669645 (Version 2)
Quarter: 2024Q2

REPORT INFORMATION
  Report Type: Spontaneous
  Country: FR (occurrence: FR)
  Receive Date: 20240325
  Receipt Date: 20240424
  Transmission Date: 20240716
  Serious: Yes (Other)
  Sender: FDA-Public Use
  Company Number: FR-009507513-2403FRA007348

PATIENT
  Age: 70 Year
  Sex: Male

DRUGS (4)
  1. KEYTRUDA [Suspect]
     Active Substance: PEMBROLIZUMAB
     Indication: Metastatic renal cell carcinoma
     Dosage: 200 MILLIGRAM, Q3W
     Route: 042
     Dates: start: 202305
  2. LENVATINIB MESYLATE [Suspect]
     Active Substance: LENVATINIB MESYLATE
     Indication: Metastatic renal cell carcinoma
     Dosage: 20 MILLIGRAM, QD
     Route: 048
     Dates: start: 202305
  3. IRBESARTAN [Concomitant]
     Active Substance: IRBESARTAN
     Indication: Hypertension
  4. ATORVASTATIN [Concomitant]
     Active Substance: ATORVASTATIN
     Indication: Hypercholesterolaemia

REACTIONS (31)
  - Hypercatabolism [Unknown]
  - Neurotoxicity [Unknown]
  - Systemic inflammatory response syndrome [Unknown]
  - Chronic kidney disease [Unknown]
  - Malignant neoplasm progression [Unknown]
  - Autoimmune haemolytic anaemia [Unknown]
  - Hypothyroidism [Unknown]
  - Adrenal insufficiency [Unknown]
  - Creatinine renal clearance abnormal [Unknown]
  - Proteinuria [Unknown]
  - Ejection fraction decreased [Unknown]
  - Blood pressure fluctuation [Unknown]
  - Muscular weakness [Unknown]
  - Bradykinesia [Unknown]
  - Cardiac disorder [Unknown]
  - Iron deficiency [Unknown]
  - Folate deficiency [Unknown]
  - Vitamin B12 deficiency [Unknown]
  - Hypophagia [Unknown]
  - Depression [Unknown]
  - Endocrine toxicity [Unknown]
  - Therapy partial responder [Unknown]
  - Weight decreased [Unknown]
  - Hypertension [Unknown]
  - Abdominal pain upper [Unknown]
  - Fatigue [Unknown]
  - Anaemia [Unknown]
  - Decreased appetite [Unknown]
  - Nausea [Unknown]
  - Vomiting [Unknown]
  - Diarrhoea [Unknown]

NARRATIVE: CASE EVENT DATE: 20230101
